FAERS Safety Report 7520562-5 (Version None)
Quarter: 2011Q2

REPORT INFORMATION
  Report Type: 
  Country: None (occurrence: None)
  Receive Date: 20110603
  Receipt Date: 20110523
  Transmission Date: 20111010
  Serious: Yes (Hospitalization)
  Sender: FDA-Public Use
  Company Number: US-AMGEN-USASP2011027340

PATIENT
  Sex: Female

DRUGS (1)
  1. ENBREL [Suspect]
     Indication: ARTHRITIS
     Dosage: UNK

REACTIONS (5)
  - DYSPNOEA [None]
  - PHARYNGEAL OEDEMA [None]
  - HYPERSENSITIVITY [None]
  - OEDEMA MOUTH [None]
  - SWOLLEN TONGUE [None]
